FAERS Safety Report 7142837-4 (Version None)
Quarter: 2010Q4

REPORT INFORMATION
  Report Type: 
  Country: None (occurrence: None)
  Receive Date: 20101207
  Receipt Date: 20101130
  Transmission Date: 20110411
  Serious: Yes (Life-Threatening)
  Sender: FDA-Public Use
  Company Number: FR-PFIZER INC-2010160109

PATIENT
  Age: 58 Year
  Sex: Male

DRUGS (17)
  1. LYRICA [Suspect]
     Indication: CANCER PAIN
     Dosage: 200 MG A DAY
     Route: 048
     Dates: start: 20091001
  2. LYRICA [Suspect]
     Dosage: 100 MG A DAY
  3. LAROXYL [Suspect]
     Indication: CANCER PAIN
     Dosage: 25 MG, 2 TABLETS/DAY
     Route: 048
     Dates: start: 20101105, end: 20101120
  4. TETRAZEPAM [Suspect]
     Indication: MUSCLE SPASMS
     Dosage: 25MG, 0.5 TABLET DAILY IF NEEDED
     Route: 048
     Dates: start: 20101102, end: 20101120
  5. SKENAN [Suspect]
     Indication: CANCER PAIN
     Dosage: 20 MG, 2X/DAY
     Route: 048
     Dates: start: 20101102
  6. SKENAN [Suspect]
     Dosage: 30 MG, 2X/DAY
     Route: 048
  7. CITALOPRAM [Suspect]
     Indication: CANCER PAIN
     Dosage: 20 MG, 1X/DAY
     Route: 048
  8. ZOPICLONE [Suspect]
     Indication: INSOMNIA
     Dosage: 7.5 MG, 1X/DAY
     Route: 048
     Dates: start: 20091001
  9. BROMAZEPAM [Suspect]
     Indication: ANXIETY
     Dosage: 6 MG, 1X/DAY
     Route: 048
     Dates: start: 20100701
  10. DECAPEPTYL [Concomitant]
     Dosage: 22.5, 1 INJECTION EVERY 6 MONTHS
     Dates: start: 20101101
  11. BICALUTAMIDE [Concomitant]
     Dosage: 50 MG, 1 INJECTION EVERY 4 WEEKS
     Dates: start: 20090601
  12. ZOMETA [Concomitant]
     Dosage: 4 MG, 1 INFUSION EVERY 4 WEEKS
     Route: 041
     Dates: start: 20090601
  13. CYPROTERONE [Concomitant]
     Dosage: 100 MG, 1X/DAY
  14. SPIRIVA [Concomitant]
     Indication: BRONCHIAL DISORDER
     Dosage: 18 A?G
     Route: 055
     Dates: start: 20060101
  15. TAHOR [Concomitant]
     Indication: HYPERCHOLESTEROLAEMIA
     Dosage: 10 MG, 1 TABLET A DAY
  16. SYMBICORT [Concomitant]
     Indication: BRONCHIAL DISORDER
     Dosage: 400/12 A?G
     Route: 055
  17. PREDNISONE [Concomitant]
     Dosage: 20 MG
     Route: 048
     Dates: start: 20090601

REACTIONS (3)
  - DISTURBANCE IN ATTENTION [None]
  - LOSS OF CONSCIOUSNESS [None]
  - ROAD TRAFFIC ACCIDENT [None]
